FAERS Safety Report 9120582 (Version 1)
Quarter: 2013Q1

REPORT INFORMATION
  Report Type: Report from Study
  Country: AU (occurrence: AU)
  Receive Date: 20130226
  Receipt Date: 20130226
  Transmission Date: 20140127
  Serious: Yes (Death, Hospitalization)
  Sender: FDA-Public Use
  Company Number: AU-ROCHE-1192669

PATIENT
  Age: 78 Year
  Sex: Female

DRUGS (9)
  1. RANIBIZUMAB [Suspect]
     Indication: AGE-RELATED MACULAR DEGENERATION
     Route: 050
     Dates: start: 20110911
  2. IRBESARTAN [Concomitant]
     Route: 065
  3. HIDROCLOROTIAZIDA [Concomitant]
     Route: 065
  4. CLOPIDOGREL [Concomitant]
     Route: 065
  5. SIMVASTATIN [Concomitant]
     Route: 065
  6. METFORMIN [Concomitant]
     Route: 065
  7. SITAGLIPTIN [Concomitant]
     Route: 065
  8. AMLODIPINE [Concomitant]
     Route: 065
  9. CEPHALEXIN [Concomitant]
     Route: 065

REACTIONS (8)
  - Pleural effusion [Fatal]
  - Pneumonia [Recovering/Resolving]
  - Lymphadenopathy mediastinal [Unknown]
  - Atelectasis [Unknown]
  - Bone cancer metastatic [Unknown]
  - Hepatomegaly [Unknown]
  - Vomiting [Unknown]
  - Nausea [Unknown]
